FAERS Safety Report 20666557 (Version 3)
Quarter: 2022Q2

REPORT INFORMATION
  Report Type: Spontaneous
  Country: US (occurrence: US)
  Receive Date: 20220403
  Receipt Date: 20220523
  Transmission Date: 20220720
  Serious: No
  Sender: FDA-Public Use
  Company Number: US-SA-SAC20220331000462

PATIENT
  Sex: Female

DRUGS (1)
  1. DUPIXENT [Suspect]
     Active Substance: DUPILUMAB
     Indication: Insomnia
     Dosage: 300 MG, QOW
     Route: 058

REACTIONS (2)
  - Symptom recurrence [Recovered/Resolved]
  - Drug ineffective for unapproved indication [Recovered/Resolved]
